FAERS Safety Report 6528537-X (Version None)
Quarter: 2010Q1

REPORT INFORMATION
  Report Type: 
  Country: None (occurrence: None)
  Receive Date: 20100106
  Receipt Date: 20091230
  Transmission Date: 20100710
  Serious: Yes (Other)
  Sender: FDA-Public Use
  Company Number: US-JNJFOC-20091100412

PATIENT
  Sex: Female
  Weight: 112.49 kg

DRUGS (5)
  1. REMICADE [Suspect]
     Dosage: 4 VIALS, 3RD INFUSION
     Route: 042
     Dates: start: 20090827, end: 20091029
  2. REMICADE [Suspect]
     Indication: RHEUMATOID ARTHRITIS
     Route: 042
     Dates: start: 20090827, end: 20091029
  3. CYMBALTA [Concomitant]
     Route: 048
  4. FLEXERIL [Concomitant]
     Route: 048
  5. ZONEGRAN [Concomitant]

REACTIONS (8)
  - ANXIETY [None]
  - CHEST DISCOMFORT [None]
  - DYSPNOEA [None]
  - FIBROMYALGIA [None]
  - HAEMORRHOIDS [None]
  - INFUSION RELATED REACTION [None]
  - PAIN IN EXTREMITY [None]
  - SINUS TACHYCARDIA [None]
